FAERS Safety Report 14327742 (Version 1)
Quarter: 2017Q4

REPORT INFORMATION
  Report Type: Spontaneous
  Country: US (occurrence: US)
  Receive Date: 20171227
  Receipt Date: 20171227
  Transmission Date: 20180321
  Serious: No
  Sender: FDA-Public Use
  Company Number: US-PFIZER INC-2017547006

PATIENT
  Age: 42 Year
  Sex: Female
  Weight: 88.45 kg

DRUGS (6)
  1. NOVOLOG MIX 70/30 [Concomitant]
     Active Substance: INSULIN ASPART
     Indication: DIABETES MELLITUS
     Dosage: SLIDING SCALE THREE TIMES A DAY
  2. GABAPENTIN. [Suspect]
     Active Substance: GABAPENTIN
     Indication: DIABETIC NEUROPATHY
  3. METFORMIN [Concomitant]
     Active Substance: METFORMIN HYDROCHLORIDE
     Indication: DIABETES MELLITUS
     Dosage: 500 MG, 2X/DAY
     Route: 048
  4. GABAPENTIN. [Suspect]
     Active Substance: GABAPENTIN
     Indication: FIBROMYALGIA
     Dosage: 300 MG, 3X/DAY
     Route: 048
  5. GABAPENTIN. [Suspect]
     Active Substance: GABAPENTIN
     Indication: PARTIAL SEIZURES
  6. LANTUS [Concomitant]
     Active Substance: INSULIN GLARGINE
     Indication: DIABETES MELLITUS
     Dosage: 10 UNITS INJECTION AT NIGHT WITH A FLEX PEN

REACTIONS (13)
  - Memory impairment [Unknown]
  - Disturbance in attention [Unknown]
  - Head injury [Unknown]
  - Fall [Unknown]
  - Feeling abnormal [Unknown]
  - Drug ineffective [Unknown]
  - Myalgia [Unknown]
  - Headache [Unknown]
  - Neuralgia [Unknown]
  - Muscle tightness [Unknown]
  - Bone pain [Unknown]
  - Gait disturbance [Unknown]
  - Musculoskeletal disorder [Unknown]
